FAERS Safety Report 8016933-3 (Version None)
Quarter: 2012Q1

REPORT INFORMATION
  Report Type: 
  Country: None (occurrence: None)
  Receive Date: 20120102
  Receipt Date: 20111223
  Transmission Date: 20120608
  Serious: Yes (Other)
  Sender: FDA-Public Use
  Company Number: PHEH2011US01895

PATIENT
  Sex: Male

DRUGS (10)
  1. FLOMAX [Concomitant]
     Dosage: 0.4 MG, DAILY
     Route: 048
  2. FLUCONAZOLE [Concomitant]
     Dosage: 10 MG, DAILY
     Route: 048
  3. EXJADE [Suspect]
     Indication: NEOPLASM
     Dosage: 750 MG, DAILY
     Route: 048
     Dates: start: 20090501
  4. EXJADE [Suspect]
     Route: 048
     Dates: start: 20100801
  5. PROSCAR [Concomitant]
     Dosage: 5 MG, DAILY
     Route: 048
  6. EXJADE [Suspect]
     Dosage: 250 MG, 7QD
  7. ACTOS [Concomitant]
     Dosage: 15 MG, DAILY
  8. ALLOPURINOL [Concomitant]
     Indication: GOUT
     Dosage: 100 MG, DAILY
  9. METOPROLOL [Concomitant]
     Dosage: 125 MG, DAILY
     Route: 048
  10. EXJADE [Suspect]
     Dosage: 1500 MG, DAILY
     Route: 048

REACTIONS (4)
  - INCORRECT DOSE ADMINISTERED [None]
  - BLOOD CREATININE INCREASED [None]
  - GOUT [None]
  - SWELLING [None]
